FAERS Safety Report 9991369 (Version 1)
Quarter: 2014Q1

REPORT INFORMATION
  Report Type: Spontaneous
  Country: US (occurrence: US)
  Receive Date: 20140310
  Receipt Date: 20140310
  Transmission Date: 20141002
  Serious: Yes (Other)
  Sender: FDA-Public Use
  Company Number: US-PFIZER INC-2014068677

PATIENT
  Sex: Female

DRUGS (4)
  1. PRISTIQ [Suspect]
     Indication: ANXIETY
     Dosage: UNK
  2. PRISTIQ [Suspect]
     Indication: DEPRESSION
  3. LIPITOR [Concomitant]
     Dosage: UNK
  4. PROTONIX [Concomitant]
     Indication: GASTRIC DISORDER
     Dosage: UNK

REACTIONS (2)
  - Mental impairment [Unknown]
  - Drug dependence [Unknown]
